FAERS Safety Report 13743858 (Version 1)
Quarter: 2017Q3

REPORT INFORMATION
  Report Type: Report from Study
  Country: None (occurrence: US)
  Receive Date: 20170711
  Receipt Date: 20170711
  Transmission Date: 20171127
  Serious: Yes (Other)
  Sender: FDA-Public Use
  Company Number: US-ABBVIE-17K-163-2033266-00

PATIENT
  Sex: Female

DRUGS (2)
  1. HUMIRA [Suspect]
     Active Substance: ADALIMUMAB
     Indication: PSORIATIC ARTHROPATHY
     Route: 058
     Dates: start: 2010
  2. HUMIRA [Suspect]
     Active Substance: ADALIMUMAB
     Route: 058
     Dates: end: 2016

REACTIONS (3)
  - Cellulitis [Recovered/Resolved]
  - Gallbladder disorder [Recovered/Resolved]
  - Sinusitis [Recovered/Resolved]

NARRATIVE: CASE EVENT DATE: 2010
